FAERS Safety Report 21846857 (Version 1)
Quarter: 2023Q1

REPORT INFORMATION
  Report Type: Spontaneous
  Country: US (occurrence: None)
  Receive Date: 20230110
  Receipt Date: 20230110
  Transmission Date: 20230418
  Serious: No
  Sender: FDA-Public Use
  Company Number: None

PATIENT
  Sex: Female
  Weight: 72.9 kg

DRUGS (2)
  1. FASLODEX [Suspect]
     Active Substance: FULVESTRANT
     Dates: end: 20221205
  2. PALBOCICLIB [Suspect]
     Active Substance: PALBOCICLIB
     Dates: end: 20221223

REACTIONS (16)
  - Pneumonia viral [None]
  - Upper respiratory tract infection [None]
  - Urinary tract infection [None]
  - Blood sodium decreased [None]
  - Anion gap increased [None]
  - Blood urea increased [None]
  - Blood creatinine increased [None]
  - Blood alkaline phosphatase increased [None]
  - Blood albumin decreased [None]
  - Aspartate aminotransferase increased [None]
  - Alanine aminotransferase increased [None]
  - Troponin increased [None]
  - White blood cell count decreased [None]
  - Haemoglobin decreased [None]
  - Platelet count decreased [None]
  - Atelectasis [None]

NARRATIVE: CASE EVENT DATE: 20221223
